FAERS Safety Report 5339443-0 (Version None)
Quarter: 2007Q2

REPORT INFORMATION
  Report Type: 
  Country: None (occurrence: None)
  Receive Date: 20070404
  Receipt Date: 20060630
  Transmission Date: 20071010
  Serious: Yes (Other)
  Sender: FDA-Public Use
  Company Number: 2006062650

PATIENT
  Sex: Male

DRUGS (3)
  1. GEODON [Suspect]
     Indication: SCHIZOAFFECTIVE DISORDER
     Dosage: 80 MG (80 MG, 1 IN 1 D)
     Dates: end: 20060501
  2. LITHIUM CARBONATE [Concomitant]
  3. EFFEXOR XR [Concomitant]

REACTIONS (6)
  - CHILLS [None]
  - EXTRAPYRAMIDAL DISORDER [None]
  - MUSCULOSKELETAL STIFFNESS [None]
  - NEUROLEPTIC MALIGNANT SYNDROME [None]
  - PYREXIA [None]
  - TREMOR [None]
